FAERS Safety Report 25099336 (Version 5)
Quarter: 2025Q3

REPORT INFORMATION
  Report Type: Report from Study
  Country: EU (occurrence: EU)
  Receive Date: 20250320
  Receipt Date: 20250818
  Transmission Date: 20251020
  Serious: Yes (Death, Hospitalization, Other)
  Sender: CSL BEHRING
  Company Number: EU-BEH-2025199553

PATIENT
  Sex: Female

DRUGS (6)
  1. VELTASSA [Suspect]
     Active Substance: PATIROMER
     Indication: Hyperkalaemia
     Route: 065
     Dates: start: 20220329
  2. RAMIPRIL [Concomitant]
     Active Substance: RAMIPRIL
  3. BISOPROLOL [Concomitant]
     Active Substance: BISOPROLOL
  4. INSULIN NOS [Concomitant]
     Active Substance: INSULIN NOS
  5. FUROSEMIDE [Concomitant]
     Active Substance: FUROSEMIDE
  6. NIFEDIPINE [Concomitant]
     Active Substance: NIFEDIPINE

REACTIONS (10)
  - Death [Fatal]
  - Chronic kidney disease [Recovered/Resolved]
  - Klebsiella infection [Recovered/Resolved]
  - Cystitis haemorrhagic [Recovered/Resolved]
  - Chronic kidney disease [Recovered/Resolved]
  - Hospitalisation [Unknown]
  - Vomiting [Recovered/Resolved]
  - Klebsiella infection [Recovered/Resolved]
  - Cystitis haemorrhagic [Recovered/Resolved]
  - Vomiting [Recovered/Resolved]

NARRATIVE: CASE EVENT DATE: 20230215
